FAERS Safety Report 14141588 (Version 1)
Quarter: 2017Q4

REPORT INFORMATION
  Report Type: Spontaneous
  Country: US (occurrence: US)
  Receive Date: 20171029
  Receipt Date: 20171029
  Transmission Date: 20180321
  Serious: No
  Sender: FDA-Public Use
  Company Number: None

PATIENT
  Age: 44 Year
  Sex: Female
  Weight: 58.5 kg

DRUGS (2)
  1. PROAIR-ALBUTEROL SULFATE AMOX/K CLAV [Concomitant]
  2. QVAR [Suspect]
     Active Substance: BECLOMETHASONE DIPROPIONATE
     Indication: ASTHMA
     Dosage: ?          QUANTITY:120 INHALATION(S);?
     Route: 055
     Dates: start: 20171024, end: 20171026

REACTIONS (4)
  - Impaired work ability [None]
  - Impaired driving ability [None]
  - Fatigue [None]
  - Lethargy [None]

NARRATIVE: CASE EVENT DATE: 20171026
